FAERS Safety Report 9729716 (Version 1)
Quarter: 2013Q4

REPORT INFORMATION
  Report Type: Spontaneous
  Country: US (occurrence: US)
  Receive Date: 20131204
  Receipt Date: 20131204
  Transmission Date: 20140711
  Serious: No
  Sender: FDA-Public Use
  Company Number: US-GILEAD-2009-0021771

PATIENT
  Sex: Female
  Weight: 74.39 kg

DRUGS (13)
  1. LETAIRIS [Suspect]
     Indication: PULMONARY ARTERIAL HYPERTENSION
     Route: 048
  2. LETAIRIS [Suspect]
     Route: 048
     Dates: start: 20090124
  3. COUMADIN [Concomitant]
  4. LIPITOR [Concomitant]
  5. CARDIZEM CD [Concomitant]
  6. ATENOLOL [Concomitant]
  7. PLAVIX [Concomitant]
  8. EFFEXOR [Concomitant]
  9. PLAQUENIL [Concomitant]
  10. VOLTAREN [Concomitant]
  11. ROBINUL FORTE [Concomitant]
  12. SYNTHROID [Concomitant]
  13. NEXIUM [Concomitant]

REACTIONS (1)
  - Fatigue [Unknown]
